FAERS Safety Report 7170776-1 (Version None)
Quarter: 2010Q4

REPORT INFORMATION
  Report Type: 
  Country: None (occurrence: None)
  Receive Date: 20101217
  Receipt Date: 20101213
  Transmission Date: 20110411
  Serious: Yes (Death)
  Sender: FDA-Public Use
  Company Number: US-AMGEN-USASP2010009485

PATIENT

DRUGS (3)
  1. NPLATE [Suspect]
     Indication: IDIOPATHIC THROMBOCYTOPENIC PURPURA
     Dosage: UNK
  2. CORTICOSTEROIDS [Concomitant]
     Indication: IDIOPATHIC THROMBOCYTOPENIC PURPURA
  3. PROMACTA [Concomitant]
     Indication: IDIOPATHIC THROMBOCYTOPENIC PURPURA
     Dosage: UNK
     Dates: start: 20100325

REACTIONS (1)
  - DEATH [None]
